FAERS Safety Report 8610963-6 (Version None)
Quarter: 2012Q3

REPORT INFORMATION
  Report Type: 
  Country: None (occurrence: None)
  Receive Date: 20120420
  Receipt Date: 20110907
  Transmission Date: 20120928
  Serious: Yes (Other)
  Sender: FDA-Public Use
  Company Number: WAES 1109USA00696

PATIENT
  Age: 10 Year
  Sex: Female

DRUGS (4)
  1. SINGULAIR [Suspect]
     Indication: ASTHMA
     Dosage: 5 MG/DAILY/PO
     Route: 048
     Dates: start: 20100101, end: 20110801
  2. ALVESCO [Concomitant]
  3. CROMOLYN SODIUM [Concomitant]
  4. ALBUTEROL [Concomitant]

REACTIONS (2)
  - ABDOMINAL DISCOMFORT [None]
  - ANXIETY [None]
